FAERS Safety Report 7338783-3 (Version None)
Quarter: 2011Q1

REPORT INFORMATION
  Report Type: 
  Country: None (occurrence: None)
  Receive Date: 20110308
  Receipt Date: 20110304
  Transmission Date: 20110831
  Serious: Yes (Hospitalization)
  Sender: FDA-Public Use
  Company Number: JP-PFIZER INC-2011042235

PATIENT
  Age: 87 Year
  Sex: Female

DRUGS (2)
  1. NORVASC [Suspect]
     Dosage: 202.5 MG, SINGLE
     Route: 048
     Dates: start: 20110223
  2. NORVASC [Suspect]
     Dosage: UNK MG, UNK
     Route: 048

REACTIONS (3)
  - OVERDOSE [None]
  - BLOOD PRESSURE DECREASED [None]
  - URINE OUTPUT DECREASED [None]
